FAERS Safety Report 19725832 (Version 1)
Quarter: 2021Q3

REPORT INFORMATION
  Report Type: Spontaneous
  Country: US (occurrence: US)
  Receive Date: 20210820
  Receipt Date: 20210820
  Transmission Date: 20211014
  Serious: No
  Sender: FDA-Public Use
  Company Number: US-AMGEN-USASP2021125881

PATIENT
  Sex: Female

DRUGS (1)
  1. REPATHA [Suspect]
     Active Substance: EVOLOCUMAB
     Indication: BLOOD CHOLESTEROL INCREASED
     Dosage: 140 MILLIGRAM, Q2WK
     Route: 065
     Dates: end: 20210706

REACTIONS (5)
  - Gait disturbance [Recovering/Resolving]
  - Dehydration [Recovering/Resolving]
  - Oropharyngeal pain [Recovering/Resolving]
  - Back pain [Recovering/Resolving]
  - Muscle fatigue [Recovering/Resolving]

NARRATIVE: CASE EVENT DATE: 2021
